FAERS Safety Report 7516565-7 (Version None)
Quarter: 2011Q2

REPORT INFORMATION
  Report Type: 
  Country: None (occurrence: None)
  Receive Date: 20110601
  Receipt Date: 20110523
  Transmission Date: 20111010
  Serious: Yes (Other)
  Sender: FDA-Public Use
  Company Number: B0723354A

PATIENT
  Sex: Female

DRUGS (4)
  1. GLICLAZIDE [Concomitant]
     Indication: DIABETES MELLITUS
  2. BECLOMETHASONE DIPROPIONATE [Suspect]
     Indication: ASTHMA
     Dosage: 100MCG AT NIGHT
     Route: 055
  3. VENTOLIN [Concomitant]
  4. METFORMIN HCL [Concomitant]
     Indication: DIABETES MELLITUS

REACTIONS (2)
  - VISUAL ACUITY REDUCED [None]
  - VISION BLURRED [None]
